FAERS Safety Report 9559792 (Version 1)
Quarter: 2013Q3

REPORT INFORMATION
  Report Type: Spontaneous
  Country: US (occurrence: None)
  Receive Date: 20130924
  Receipt Date: 20130924
  Transmission Date: 20140515
  Serious: Yes (Hospitalization)
  Sender: FDA-Public Use
  Company Number: US-012989

PATIENT
  Age: 10 Year
  Sex: Male
  Weight: 28.12 kg

DRUGS (10)
  1. TEV-TROPIN [Suspect]
     Indication: GROWTH HORMONE DEFICIENCY
     Route: 058
     Dates: start: 20130402, end: 201308
  2. SODIUM FLOURIDE [Concomitant]
  3. RISPERDAL [Concomitant]
  4. DIASTAT [Concomitant]
  5. CARNITOR [Concomitant]
  6. LAMICTAL [Concomitant]
  7. BANZEL [Concomitant]
  8. DEPAKOTE [Concomitant]
  9. CLOBAZAM [Concomitant]
  10. NAMENDA [Concomitant]

REACTIONS (2)
  - Convulsion [None]
  - Condition aggravated [None]
